FAERS Safety Report 5225629-2 (Version None)
Quarter: 2007Q1

REPORT INFORMATION
  Report Type: 
  Country: None (occurrence: None)
  Receive Date: 20070129
  Receipt Date: 20070121
  Transmission Date: 20070707
  Serious: Yes (Death, Hospitalization, Other)
  Sender: FDA-Public Use
  Company Number: 2007SP001300

PATIENT
  Age: 71 Year
  Sex: Male

DRUGS (4)
  1. TEMODAL [Suspect]
     Indication: GLIOBLASTOMA
     Dosage: 300 MG; QD; PO
     Route: 048
     Dates: start: 20060516, end: 20060828
  2. BELOC ZOK MITE [Concomitant]
  3. DECORTIN [Concomitant]
  4. EUGLUCON [Concomitant]

REACTIONS (9)
  - ARRHYTHMIA [None]
  - CEREBRAL HAEMORRHAGE [None]
  - DIABETES MELLITUS INADEQUATE CONTROL [None]
  - DISEASE PROGRESSION [None]
  - GENERAL PHYSICAL HEALTH DETERIORATION [None]
  - GENERALISED OEDEMA [None]
  - HAEMORRHAGE [None]
  - PNEUMONIA [None]
  - SHOCK [None]
